FAERS Safety Report 10913902 (Version 1)
Quarter: 2015Q1

REPORT INFORMATION
  Report Type: Spontaneous
  Country: CA (occurrence: None)
  Receive Date: 20150310
  Receipt Date: 20150310
  Transmission Date: 20150721
  Serious: Yes (Hospitalization)
  Sender: FDA-Public Use
  Company Number: CA-ZYDUS-006833

PATIENT
  Age: 2 Year
  Sex: Male

DRUGS (1)
  1. CLONIDINE (CLONIDINE) [Suspect]
     Active Substance: CLONIDINE

REACTIONS (8)
  - Hypotension [None]
  - Lethargy [None]
  - Coma [None]
  - Accidental exposure to product by child [None]
  - Miosis [None]
  - Hypotonia [None]
  - Atrioventricular block [None]
  - Accidental overdose [None]
